FAERS Safety Report 5427724-1 (Version None)
Quarter: 2007Q3

REPORT INFORMATION
  Report Type: 
  Country: None (occurrence: None)
  Receive Date: 20070823
  Receipt Date: 20070817
  Transmission Date: 20080115
  Serious: Yes (Death, Life-Threatening, Hospitalization, Other)
  Sender: FDA-Public Use
  Company Number: 163-21880-07050981

PATIENT
  Age: 67 Year
  Sex: Female

DRUGS (3)
  1. REVLIMID [Suspect]
     Indication: MULTIPLE MYELOMA
     Dosage: 10 MG, TIMES 21 DAYS ON 7 DAYS OFF, ORAL
     Route: 048
     Dates: start: 20070502, end: 20070516
  2. DEXAMETHASONE TAB [Concomitant]
  3. ARANESP [Concomitant]

REACTIONS (6)
  - CONFUSIONAL STATE [None]
  - DISEASE PROGRESSION [None]
  - HEPATIC FAILURE [None]
  - LEUKAEMIA PLASMACYTIC [None]
  - MULTIPLE MYELOMA [None]
  - TACHYCARDIA [None]
